FAERS Safety Report 13230380 (Version 1)
Quarter: 2017Q1

REPORT INFORMATION
  Report Type: Spontaneous
  Country: DE (occurrence: DE)
  Receive Date: 20170214
  Receipt Date: 20170214
  Transmission Date: 20170428
  Serious: Yes (Congenital Anomaly, Other)
  Sender: FDA-Public Use
  Company Number: DE-DRREDDYS-GER/GER/17/0087119

PATIENT
  Age: 1 Day
  Sex: Female
  Weight: 3.7 kg

DRUGS (5)
  1. LAMOTRIGIN DURA [Suspect]
     Active Substance: LAMOTRIGINE
     Indication: SCHIZOAFFECTIVE DISORDER
     Dosage: 300 (MG/D )/ FIRST 125-0-125 MG/D, THAN 150-0-150 MG/D
     Route: 064
     Dates: start: 20151007, end: 20160712
  2. FEMIBION [Concomitant]
     Active Substance: VITAMINS
     Indication: PROPHYLAXIS OF NEURAL TUBE DEFECT
     Route: 064
     Dates: start: 20151007, end: 20160712
  3. QUETIAPINE. [Suspect]
     Active Substance: QUETIAPINE
     Indication: SCHIZOAFFECTIVE DISORDER
     Route: 064
     Dates: start: 20151007, end: 20160712
  4. INSULIN BASAL [Concomitant]
     Active Substance: INSULIN NOS
     Indication: GESTATIONAL DIABETES
     Dosage: 11 (I.E./D )/ ACCORDING TO BLOOD GLUCOSE LEVEL 5-11 IE/D
     Route: 064
  5. MISOPROSTOL. [Concomitant]
     Active Substance: MISOPROSTOL
     Indication: LABOUR INDUCTION
     Route: 064
     Dates: start: 20160712, end: 20160712

REACTIONS (3)
  - Congenital hydronephrosis [Not Recovered/Not Resolved]
  - Tachycardia foetal [Unknown]
  - Foetal exposure during pregnancy [Recovered/Resolved]

NARRATIVE: CASE EVENT DATE: 20160712
